FAERS Safety Report 8342098 (Version 2)
Quarter: 2013Q2

REPORT INFORMATION
  Report Type: Spontaneous
  Country: US (occurrence: None)
  Receive Date: 20111202
  Receipt Date: 20121203
  Transmission Date: 20140414
  Serious: Yes (Hospitalization)
  Sender: FDA-Public Use
  Company Number: 2011SP030613

PATIENT
  Age: 33 Year
  Sex: Female
  Weight: 70.8 kg

DRUGS (4)
  1. NUVARING [Suspect]
     Indication: CONTRACEPTION
     Dates: start: 200805, end: 20090822
  2. NUVARING [Suspect]
     Indication: MIGRAINE
     Dates: start: 200805, end: 20090822
  3. IMITREX (SUMATRIPTAN) [Concomitant]
  4. LORTAB [Suspect]

REACTIONS (10)
  - DEEP VEIN THROMBOSIS [None]
  - Deep vein thrombosis [None]
  - Hypercoagulation [None]
  - Mental disorder [None]
  - Family stress [None]
  - Insomnia [None]
  - Anxiety [None]
  - Dysmenorrhoea [None]
  - Chest pain [None]
  - Cellulitis [None]
